FAERS Safety Report 14419183 (Version 1)
Quarter: 2018Q1

REPORT INFORMATION
  Report Type: Spontaneous
  Country: US (occurrence: US)
  Receive Date: 20180120
  Receipt Date: 20180120
  Transmission Date: 20180509
  Serious: Yes (Death)
  Sender: FDA-Public Use
  Company Number: None

PATIENT
  Age: 90 Year
  Sex: Male

DRUGS (11)
  1. SODIUM BICAR [Concomitant]
  2. VITAMIN D3 [Concomitant]
     Active Substance: CHOLECALCIFEROL
  3. LASIX [Concomitant]
     Active Substance: FUROSEMIDE
  4. SYMBICORT [Concomitant]
     Active Substance: BUDESONIDE\FORMOTEROL FUMARATE DIHYDRATE
  5. AMLO/ATORVA [Concomitant]
  6. IRON [Concomitant]
     Active Substance: IRON
  7. OMEPRAZOLE. [Concomitant]
     Active Substance: OMEPRAZOLE
  8. ALBUTEROL. [Concomitant]
     Active Substance: ALBUTEROL
  9. METOPROLOL TARTRATE. [Concomitant]
     Active Substance: METOPROLOL TARTRATE
  10. TYLENOL [Concomitant]
     Active Substance: ACETAMINOPHEN
  11. LUPRON DEPOT [Suspect]
     Active Substance: LEUPROLIDE ACETATE
     Indication: PROSTATE CANCER
     Dosage: ?          OTHER FREQUENCY:Q 6 MONTHS;?
     Route: 030
     Dates: start: 20080912

REACTIONS (1)
  - Death [None]

NARRATIVE: CASE EVENT DATE: 20171203
